FAERS Safety Report 11909952 (Version 2)
Quarter: 2016Q1

REPORT INFORMATION
  Report Type: Report from Study
  Country: DE (occurrence: DE)
  Receive Date: 20160112
  Receipt Date: 20160212
  Transmission Date: 20160526
  Serious: No
  Sender: FDA-Public Use
  Company Number: PHHY2016DE001920

PATIENT
  Age: 44 Year
  Sex: Female

DRUGS (1)
  1. GILENYA [Suspect]
     Active Substance: FINGOLIMOD HYDROCHLORIDE
     Indication: MULTIPLE SCLEROSIS
     Dosage: UNK, QD
     Route: 048

REACTIONS (5)
  - Blood cholesterol increased [Unknown]
  - White blood cell count decreased [Recovered/Resolved]
  - High density lipoprotein increased [Unknown]
  - Lymphocyte count decreased [Unknown]
  - Sciatica [Unknown]

NARRATIVE: CASE EVENT DATE: 20140408
